FAERS Safety Report 11070641 (Version 1)
Quarter: 2015Q2

REPORT INFORMATION
  Report Type: Spontaneous
  Country: KR (occurrence: KR)
  Receive Date: 20150427
  Receipt Date: 20150427
  Transmission Date: 20150821
  Serious: Yes (Other)
  Sender: FDA-Public Use
  Company Number: ALCN2015KR002623

PATIENT
  Age: 28 Month
  Sex: Female

DRUGS (1)
  1. ALCAINE [Suspect]
     Active Substance: PROPARACAINE HYDROCHLORIDE
     Route: 061

REACTIONS (1)
  - Corneal epithelium defect [Recovered/Resolved]
